FAERS Safety Report 5003276-5 (Version None)
Quarter: 2006Q2

REPORT INFORMATION
  Report Type: 
  Country: None (occurrence: None)
  Receive Date: 20060516
  Receipt Date: 20060511
  Transmission Date: 20061013
  Serious: Yes (Death)
  Sender: FDA-Public Use
  Company Number: 2006UW09363

PATIENT
  Age: 9 Year
  Sex: Male

DRUGS (4)
  1. SEROQUEL [Suspect]
     Indication: AFFECTIVE DISORDER
     Route: 048
  2. SEROQUEL [Suspect]
     Indication: SLEEP DISORDER
     Route: 048
  3. ADDERALL XL [Concomitant]
  4. GUAIFENESIN [Concomitant]

REACTIONS (3)
  - BLOOD SODIUM DECREASED [None]
  - CHEST PAIN [None]
  - CONVULSION [None]
